FAERS Safety Report 9364956 (Version 4)
Quarter: 2017Q4

REPORT INFORMATION
  Report Type: Spontaneous
  Country: US (occurrence: US)
  Receive Date: 20130624
  Receipt Date: 20171214
  Transmission Date: 20180321
  Serious: Yes (Hospitalization, Disabling, Other)
  Sender: FDA-Public Use
  Company Number: US-009507513-1205USA02099

PATIENT
  Sex: Female
  Weight: 78.01 kg

DRUGS (3)
  1. FOSAMAX [Suspect]
     Active Substance: ALENDRONATE SODIUM
     Indication: OSTEOPOROSIS
     Dosage: 70 MG, QW
     Route: 048
     Dates: end: 20110516
  2. ALENDRONATE SODIUM. [Suspect]
     Active Substance: ALENDRONATE SODIUM
     Indication: OSTEOPOROSIS
     Dosage: 70 MG, UNK
     Route: 065
  3. FOSAMAX [Suspect]
     Active Substance: ALENDRONATE SODIUM
     Indication: OSTEOPOROSIS
     Dosage: 10 MG, UNK
     Route: 048
     Dates: start: 199906

REACTIONS (26)
  - Uterine dilation and curettage [Unknown]
  - Anaemia postoperative [Unknown]
  - Drug hypersensitivity [Recovering/Resolving]
  - Blood cholesterol increased [Unknown]
  - Gastroenteritis viral [Unknown]
  - Blood magnesium decreased [Unknown]
  - Femur fracture [Not Recovered/Not Resolved]
  - Hypertension [Unknown]
  - Dyspnoea [Recovering/Resolving]
  - Drug hypersensitivity [Unknown]
  - Osteoporosis [Not Recovered/Not Resolved]
  - Low turnover osteopathy [Not Recovered/Not Resolved]
  - Cardiac valve disease [Unknown]
  - Diplopia [Recovering/Resolving]
  - Soft tissue mass [Unknown]
  - Urinary tract infection [Recovering/Resolving]
  - Upper respiratory tract infection [Unknown]
  - Hip arthroplasty [Unknown]
  - Bursitis [Not Recovered/Not Resolved]
  - Gait disturbance [Unknown]
  - Bursitis [Not Recovered/Not Resolved]
  - Stress fracture [Not Recovered/Not Resolved]
  - Fatigue [Recovering/Resolving]
  - Musculoskeletal pain [Unknown]
  - Osteoarthritis [Not Recovered/Not Resolved]
  - Cataract [Unknown]

NARRATIVE: CASE EVENT DATE: 200110
